FAERS Safety Report 7716293-9 (Version None)
Quarter: 2011Q3

REPORT INFORMATION
  Report Type: 
  Country: None (occurrence: None)
  Receive Date: 20110829
  Receipt Date: 20110815
  Transmission Date: 20111222
  Serious: Yes (Hospitalization)
  Sender: FDA-Public Use
  Company Number: PHHY2011US57761

PATIENT
  Sex: Female

DRUGS (2)
  1. COZAAR [Suspect]
  2. DIOVAN [Suspect]

REACTIONS (2)
  - VENTRICULAR EXTRASYSTOLES [None]
  - ARRHYTHMIA [None]
